FAERS Safety Report 5365921-4 (Version None)
Quarter: 2007Q2

REPORT INFORMATION
  Report Type: 
  Country: None (occurrence: None)
  Receive Date: 20070611
  Receipt Date: 20070131
  Transmission Date: 20071010
  Serious: Yes (Death)
  Sender: FDA-Public Use
  Company Number: USA-2007-0026366

PATIENT
  Age: 36 Year
  Sex: Male
  Weight: 99.8 kg

DRUGS (5)
  1. OXYCODONE HYDROCHLORIDE [Suspect]
     Indication: DRUG ABUSER
     Dosage: SEE TEXT
  2. DIAZEPAM [Suspect]
     Indication: DRUG ABUSER
     Dosage: SEE TEXT
  3. BENZODIAZEPINE DERIVATIVES [Suspect]
     Indication: DRUG ABUSER
     Dosage: SEE TEXT
  4. HYDROCODONE  (HYDROCODONE) [Suspect]
     Indication: DRUG ABUSER
     Dosage: SEE TEXT
  5. OPIOIDS [Suspect]
     Indication: DRUG ABUSER
     Dosage: SEE TEXT

REACTIONS (4)
  - BREATH SOUNDS ABSENT [None]
  - MULTIPLE DRUG OVERDOSE ACCIDENTAL [None]
  - SNORING [None]
  - VOMITING [None]
